FAERS Safety Report 20341004 (Version 1)
Quarter: 2022Q1

REPORT INFORMATION
  Report Type: Spontaneous
  Country: US (occurrence: US)
  Receive Date: 20220117
  Receipt Date: 20220117
  Transmission Date: 20220423
  Serious: Yes (Other)
  Sender: FDA-Public Use
  Company Number: US-PFIZER INC-202200010556

PATIENT
  Age: 17 Year
  Sex: Male

DRUGS (3)
  1. METHIMAZOLE [Suspect]
     Active Substance: METHIMAZOLE
     Indication: Hyperthyroidism
     Dosage: UNK
     Dates: start: 2020, end: 2020
  2. PROPRANOLOL [Concomitant]
     Active Substance: PROPRANOLOL HYDROCHLORIDE
     Dosage: 40 MG, Q 8 HOURS
     Dates: start: 2020, end: 2020
  3. HYDROCORTISONE [Concomitant]
     Active Substance: HYDROCORTISONE
     Dosage: 100 MG, Q 8 HOURS
     Dates: start: 2020, end: 2020

REACTIONS (3)
  - Transaminases increased [Recovered/Resolved]
  - Exfoliative rash [Unknown]
  - Drug ineffective [Unknown]
